FAERS Safety Report 8455274-7 (Version None)
Quarter: 2012Q2

REPORT INFORMATION
  Report Type: 
  Country: None (occurrence: None)
  Receive Date: 20120614
  Receipt Date: 20120529
  Transmission Date: 20120825
  Serious: Yes (Life-Threatening, Other)
  Sender: FDA-Public Use
  Company Number: MC201200349

PATIENT
  Age: 59 Year
  Sex: Female

DRUGS (2)
  1. ANGIOMAX [Suspect]
     Indication: PERCUTANEOUS CORONARY INTERVENTION
     Dates: start: 20120501
  2. EFFIENT [Concomitant]

REACTIONS (4)
  - DEVICE OCCLUSION [None]
  - PROCEDURAL COMPLICATION [None]
  - CORONARY ARTERY DISSECTION [None]
  - ACUTE MYOCARDIAL INFARCTION [None]
